FAERS Safety Report 4349159-5 (Version None)
Quarter: 2004Q2

REPORT INFORMATION
  Report Type: 
  Country: None (occurrence: None)
  Receive Date: 20040427
  Receipt Date: 20030709
  Transmission Date: 20050107
  Serious: No
  Sender: FDA-Public Use
  Company Number: 000585

PATIENT
  Age: 60 Year
  Sex: Female

DRUGS (1)
  1. ZEVALIN THERAPY  .(RITUXIMAB, INDIUM-111-IBRITUMOMAB TIUXETAN, YTTRIUM [Suspect]
     Indication: NON-HODGKIN'S LYMPHOMA
     Dosage: SINGLE RITUXAN DOSE 1 INTRAVENOUS; 5 MCI SINGLE IN-[111] ZEVALIN, INTRAVENOUS
     Route: 042
     Dates: start: 20030708, end: 20030708

REACTIONS (1)
  - RASH [None]
